FAERS Safety Report 9337742 (Version 1)
Quarter: 2013Q2

REPORT INFORMATION
  Report Type: Spontaneous
  Country: NL (occurrence: NL)
  Receive Date: 20130607
  Receipt Date: 20130607
  Transmission Date: 20140414
  Serious: Yes (Hospitalization)
  Sender: FDA-Public Use
  Company Number: NL-MYLANLABS-2013S1011537

PATIENT
  Age: 52 Year
  Sex: Male

DRUGS (2)
  1. METHADONE [Suspect]
     Route: 065
  2. METOPROLOL [Suspect]
     Indication: TORSADE DE POINTES
     Route: 065

REACTIONS (5)
  - Bradyarrhythmia [Recovered/Resolved]
  - Torsade de pointes [Recovered/Resolved]
  - Long QT syndrome [Recovered/Resolved]
  - Condition aggravated [Recovered/Resolved]
  - Drug abuse [Unknown]
